FAERS Safety Report 8399844-3 (Version None)
Quarter: 2012Q2

REPORT INFORMATION
  Report Type: 
  Country: None (occurrence: None)
  Receive Date: 20120531
  Receipt Date: 20120525
  Transmission Date: 20120825
  Serious: Yes (Hospitalization)
  Sender: FDA-Public Use
  Company Number: VE-PFIZER INC-2012128156

PATIENT
  Sex: Male

DRUGS (1)
  1. LYRICA [Suspect]

REACTIONS (1)
  - RESPIRATORY TRACT INFECTION [None]
